FAERS Safety Report 4989430-7 (Version None)
Quarter: 2006Q2

REPORT INFORMATION
  Report Type: 
  Country: None (occurrence: None)
  Receive Date: 20060425
  Receipt Date: 20060419
  Transmission Date: 20061013
  Serious: No
  Sender: FDA-Public Use
  Company Number: 0604-207

PATIENT
  Age: 77 Year
  Sex: Female
  Weight: 65.7716 kg

DRUGS (1)
  1. DUONEB [Suspect]
     Indication: EMPHYSEMA
     Dosage: 1 VIAL TWICE DAILY-INHALATION
     Route: 055
     Dates: start: 20060326

REACTIONS (4)
  - DRUG INEFFECTIVE [None]
  - DRUG LEVEL DECREASED [None]
  - LUNG INFECTION [None]
  - PHARMACEUTICAL PRODUCT COMPLAINT [None]
